FAERS Safety Report 6635059-4 (Version None)
Quarter: 2010Q1

REPORT INFORMATION
  Report Type: 
  Country: None (occurrence: None)
  Receive Date: 20100312
  Receipt Date: 20100312
  Transmission Date: 20100710
  Serious: Yes (Other)
  Sender: FDA-Public Use
  Company Number: None

PATIENT
  Age: 44 Year
  Sex: Female
  Weight: 77.1115 kg

DRUGS (1)
  1. SINGULAIR [Suspect]
     Indication: MULTIPLE ALLERGIES
     Dosage: 1 TAB EVERY DAY OTHER 6PM
     Dates: start: 20100216, end: 20100311

REACTIONS (8)
  - ARTHRALGIA [None]
  - GAIT DISTURBANCE [None]
  - JOINT SWELLING [None]
  - MUSCLE SPASMS [None]
  - MYALGIA [None]
  - OEDEMA PERIPHERAL [None]
  - OROPHARYNGEAL PAIN [None]
  - PAIN IN EXTREMITY [None]
